FAERS Safety Report 17634031 (Version 1)
Quarter: 2020Q2

REPORT INFORMATION
  Report Type: Spontaneous
  Country: US (occurrence: US)
  Receive Date: 20200406
  Receipt Date: 20200406
  Transmission Date: 20200713
  Serious: No
  Sender: FDA-Public Use
  Company Number: US-GALDERMA-US2020001705

PATIENT
  Age: 21 Year
  Sex: Female

DRUGS (5)
  1. PROACTIV GREEN TEA MOISTURIZER [Concomitant]
     Active Substance: COSMETICS
     Indication: PRODUCT USED FOR UNKNOWN INDICATION
     Route: 061
     Dates: start: 20191225, end: 20191230
  2. PROACTIV DEEP CLEANSING WASH [Concomitant]
     Active Substance: SALICYLIC ACID
     Indication: PRODUCT USED FOR UNKNOWN INDICATION
     Route: 061
     Dates: start: 20191225, end: 20191230
  3. PROACTIV MD ADAPALENE ACNE TREATMENT [Suspect]
     Active Substance: ADAPALENE
     Indication: PRODUCT USED FOR UNKNOWN INDICATION
     Dosage: 0.1%
     Route: 061
     Dates: start: 20191225, end: 20191230
  4. PROACTIV REDNESS RELIEF SERUM [Concomitant]
     Indication: PRODUCT USED FOR UNKNOWN INDICATION
     Route: 061
     Dates: start: 20191225, end: 20191230
  5. PROACTIV MD DEEP CLEANSING FACE WASH [Concomitant]
     Active Substance: COSMETICS
     Indication: PRODUCT USED FOR UNKNOWN INDICATION
     Route: 061
     Dates: start: 20191225, end: 20191230

REACTIONS (9)
  - Pain of skin [Recovering/Resolving]
  - Inappropriate schedule of product administration [Recovered/Resolved]
  - Blister [Recovering/Resolving]
  - Skin burning sensation [Recovering/Resolving]
  - Hypoaesthesia oral [Recovering/Resolving]
  - Urticaria [Recovering/Resolving]
  - Skin exfoliation [Recovering/Resolving]
  - Hypersensitivity [Recovering/Resolving]
  - Overdose [Recovered/Resolved]

NARRATIVE: CASE EVENT DATE: 20191225
